FAERS Safety Report 7670563 (Version 3)
Quarter: 2013Q2

REPORT INFORMATION
  Report Type: Spontaneous
  Country: US (occurrence: US)
  Receive Date: 20101116
  Receipt Date: 20130425
  Transmission Date: 20140414
  Serious: Yes (Other)
  Sender: FDA-Public Use
  Company Number: US-ROCHE-718926

PATIENT
  Age: 14 Year
  Sex: Male
  Weight: 90.7 kg

DRUGS (4)
  1. ACCUTANE [Suspect]
     Indication: ACNE
     Route: 065
  2. ACCUTANE [Suspect]
     Dosage: 40 MG DAILY-ODD DAYS, 80 MG DAILY-EVEN DAYS.
     Route: 065
  3. ACCUTANE [Suspect]
     Route: 065
  4. ACCUTANE [Suspect]
     Dosage: DOSAGE REDUCED
     Route: 065

REACTIONS (7)
  - Crohn^s disease [Unknown]
  - Gastrointestinal injury [Unknown]
  - Colitis ulcerative [Unknown]
  - Inflammatory bowel disease [Unknown]
  - Cholangitis sclerosing [Unknown]
  - Cheilitis [Unknown]
  - Rash erythematous [Unknown]
